FAERS Safety Report 25706664 (Version 5)
Quarter: 2025Q4

REPORT INFORMATION
  Report Type: Spontaneous
  Country: US (occurrence: US)
  Receive Date: 20250820
  Receipt Date: 20251223
  Transmission Date: 20260118
  Serious: No
  Sender: SANOFI AVENTIS
  Company Number: US-SA-2025SA246234

PATIENT
  Age: 18 Year
  Sex: Male

DRUGS (4)
  1. DUPIXENT [Suspect]
     Active Substance: DUPILUMAB
     Indication: Dermatitis atopic
     Dosage: 600 MG, 1X
     Route: 058
     Dates: start: 20250729, end: 20250729
  2. DUPIXENT [Suspect]
     Active Substance: DUPILUMAB
     Dosage: 300 MG, QOW
     Route: 058
     Dates: start: 202508, end: 2025
  3. DUPIXENT [Suspect]
     Active Substance: DUPILUMAB
     Dosage: 300 MG, QW
     Route: 058
     Dates: start: 202509
  4. RINVOQ [Concomitant]
     Active Substance: UPADACITINIB
     Indication: Product used for unknown indication
     Dosage: UNK

REACTIONS (6)
  - Pain [Unknown]
  - Dermatitis atopic [Not Recovered/Not Resolved]
  - Off label use [Unknown]
  - Injection site pain [Unknown]
  - Product preparation error [Unknown]
  - Drug ineffective [Unknown]

NARRATIVE: CASE EVENT DATE: 20250101
